FAERS Safety Report 8787629 (Version 1)
Quarter: 2012Q4

REPORT INFORMATION
  Report Type: 
  Country: US (occurrence: US)
  Receive Date: 20120915
  Receipt Date: 20120915
  Transmission Date: 20130627
  Serious: No
  Sender: FDA-Public Use
  Company Number: US-B.I. PHARMACEUTICALS,INC./RIDGEFIELD-2012-BP-22266BP

PATIENT
  Age: 70 Year
  Sex: Female
  Weight: 89 kg

DRUGS (5)
  1. SPIRIVA [Suspect]
     Indication: ASTHMA
     Dosage: 18 mcg
     Route: 055
     Dates: start: 2011
  2. SPIRIVA [Suspect]
     Route: 048
     Dates: start: 20120907, end: 20120907
  3. BABY ASPIRIN [Concomitant]
     Dosage: 81 mg
     Route: 048
  4. SYNTHROID [Concomitant]
     Route: 048
  5. ALBUTEROL [Concomitant]
     Route: 055

REACTIONS (1)
  - Incorrect route of drug administration [Recovered/Resolved]
